FAERS Safety Report 18370472 (Version 2)
Quarter: 2020Q4

REPORT INFORMATION
  Report Type: Spontaneous
  Country: FI (occurrence: FI)
  Receive Date: 20201012
  Receipt Date: 20201105
  Transmission Date: 20210114
  Serious: Yes (Other)
  Sender: FDA-Public Use
  Company Number: FI-BAUSCH-BL-2020-028704

PATIENT
  Sex: Female

DRUGS (4)
  1. HYDROCORTISON [Suspect]
     Active Substance: HYDROCORTISONE
     Indication: ADDISON^S DISEASE
     Dosage: DOSING 10+5+5MG/DAILY
     Route: 048
     Dates: start: 2001
  2. ESCITALOPRAM ORION [Concomitant]
     Active Substance: ESCITALOPRAM OXALATE
     Indication: DEPRESSION
     Route: 065
     Dates: start: 2017
  3. FLORINEF ACETATE [Concomitant]
     Active Substance: FLUDROCORTISONE ACETATE
     Indication: ADDISON^S DISEASE
     Dosage: 0.1 MG, AT 1/2 TABLET/DAILY
     Route: 065
     Dates: start: 2002
  4. THYROXIN [Concomitant]
     Active Substance: LEVOTHYROXINE
     Indication: HYPOTHYROIDISM
     Route: 065
     Dates: start: 2009

REACTIONS (7)
  - Product physical issue [Unknown]
  - Suspected product quality issue [Unknown]
  - Gastritis [Not Recovered/Not Resolved]
  - Extra dose administered [Unknown]
  - Adrenocortical insufficiency acute [Recovered/Resolved]
  - Product quality issue [Unknown]
  - Drug ineffective [Unknown]
